FAERS Safety Report 25807452 (Version 6)
Quarter: 2025Q4

REPORT INFORMATION
  Report Type: Report from Study
  Country: EG (occurrence: EG)
  Receive Date: 20250916
  Receipt Date: 20251106
  Transmission Date: 20260118
  Serious: Yes (Other)
  Sender: ASTELLAS
  Company Number: EG-ASTELLAS-2025-AER-050316

PATIENT
  Age: 71 Year
  Sex: Male
  Weight: 108 kg

DRUGS (12)
  1. PADCEV [Suspect]
     Active Substance: ENFORTUMAB VEDOTIN-EJFV
     Indication: Transitional cell carcinoma
     Route: 042
     Dates: start: 20250830
  2. PADCEV [Suspect]
     Active Substance: ENFORTUMAB VEDOTIN-EJFV
     Route: 042
     Dates: start: 20250906
  3. PADCEV [Suspect]
     Active Substance: ENFORTUMAB VEDOTIN-EJFV
     Dosage: 2ND CYCLE
     Route: 042
     Dates: start: 20250927
  4. PADCEV [Suspect]
     Active Substance: ENFORTUMAB VEDOTIN-EJFV
     Route: 042
     Dates: start: 20251018, end: 20251101
  5. DEXAMETHASONE [Concomitant]
     Active Substance: DEXAMETHASONE
     Indication: Hypersensitivity
     Dosage: DOSE: 1 (UNITS UNKNOWN)
     Route: 065
     Dates: start: 20250830, end: 20250908
  6. PHENIRAMINE [Concomitant]
     Active Substance: PHENIRAMINE
     Indication: Hypersensitivity
     Route: 065
     Dates: start: 20250830
  7. PHENIRAMINE [Concomitant]
     Active Substance: PHENIRAMINE
     Route: 065
     Dates: start: 20250907
  8. BISOPROLOL FUMARATE [Concomitant]
     Active Substance: BISOPROLOL FUMARATE
     Indication: Heart rate irregular
     Route: 065
  9. BISOPROLOL FUMARATE [Concomitant]
     Active Substance: BISOPROLOL FUMARATE
     Dosage: ONGOING; INCREASED
     Route: 065
  10. KEYTRUDA [Concomitant]
     Active Substance: PEMBROLIZUMAB
     Indication: Product used for unknown indication
     Route: 065
  11. CIPROFLOXACIN [Concomitant]
     Active Substance: CIPROFLOXACIN
     Indication: Urinary tract infection
     Dosage: FOR 10 DAYS
     Route: 065
  12. INSULIN NOS [Concomitant]
     Active Substance: INSULIN NOS
     Indication: Diabetes mellitus
     Dosage: ONGOING
     Route: 065

REACTIONS (23)
  - Pruritus [Not Recovered/Not Resolved]
  - Hypersensitivity [Recovered/Resolved]
  - Body temperature increased [Not Recovered/Not Resolved]
  - Erythema [Recovered/Resolved]
  - Malignant neoplasm progression [Unknown]
  - Feeling cold [Unknown]
  - Skin exfoliation [Not Recovered/Not Resolved]
  - Skin discolouration [Not Recovered/Not Resolved]
  - Dry mouth [Recovering/Resolving]
  - Dry skin [Recovering/Resolving]
  - Skin irritation [Unknown]
  - Allergic cough [Recovering/Resolving]
  - Skin tightness [Unknown]
  - Throat irritation [Recovering/Resolving]
  - Heart rate irregular [Unknown]
  - Tachycardia [Recovered/Resolved]
  - Dry eye [Not Recovered/Not Resolved]
  - Fatigue [Not Recovered/Not Resolved]
  - Blood glucose increased [Recovering/Resolving]
  - Arthralgia [Unknown]
  - Lethargy [Not Recovered/Not Resolved]
  - Tongue dry [Unknown]
  - Drug ineffective [Unknown]

NARRATIVE: CASE EVENT DATE: 20250101
